FAERS Safety Report 13139573 (Version 1)
Quarter: 2017Q1

REPORT INFORMATION
  Report Type: Spontaneous
  Country: US (occurrence: US)
  Receive Date: 20170123
  Receipt Date: 20170123
  Transmission Date: 20170428
  Serious: No
  Sender: FDA-Public Use
  Company Number: US-REGENERON PHARMACEUTICALS, INC.-2016-18255

PATIENT

DRUGS (2)
  1. EYLEA [Suspect]
     Active Substance: AFLIBERCEPT
     Indication: RETINAL VEIN OCCLUSION
     Dosage: LEFT EYE (OS)
  2. EYLEA [Suspect]
     Active Substance: AFLIBERCEPT
     Dosage: UNK
     Dates: start: 20160607, end: 20160607

REACTIONS (5)
  - Ocular discomfort [Unknown]
  - Eye inflammation [Unknown]
  - Lens disorder [Not Recovered/Not Resolved]
  - Vision blurred [Unknown]
  - Cataract subcapsular [Not Recovered/Not Resolved]

NARRATIVE: CASE EVENT DATE: 20160609
